FAERS Safety Report 25724311 (Version 2)
Quarter: 2025Q3

REPORT INFORMATION
  Report Type: Spontaneous
  Country: US (occurrence: US)
  Receive Date: 20250826
  Receipt Date: 20250826
  Transmission Date: 20251021
  Serious: No
  Sender: SANDOZ
  Company Number: US-SANDOZ-SDZ2025US060143

PATIENT
  Age: 52 Year
  Sex: Female
  Weight: 65.77 kg

DRUGS (2)
  1. ESTRADIOL [Suspect]
     Active Substance: ESTRADIOL
     Indication: Hormone replacement therapy
     Route: 003
     Dates: start: 20250101, end: 20250819
  2. ESTRADIOL [Suspect]
     Active Substance: ESTRADIOL
     Indication: Menopause

REACTIONS (3)
  - Application site pruritus [Recovering/Resolving]
  - Application site infection [Recovering/Resolving]
  - Application site irritation [Recovering/Resolving]

NARRATIVE: CASE EVENT DATE: 20250201
